FAERS Safety Report 9776486 (Version 1)
Quarter: 2013Q4

REPORT INFORMATION
  Report Type: Spontaneous
  Country: IN (occurrence: IN)
  Receive Date: 20131220
  Receipt Date: 20131220
  Transmission Date: 20140711
  Serious: Yes (Other)
  Sender: FDA-Public Use
  Company Number: IN-ALLERGAN-1319550US

PATIENT
  Age: 12 Year
  Sex: Male

DRUGS (1)
  1. OZURDEX [Suspect]
     Indication: INTERMEDIATE UVEITIS
     Dosage: 0.7 MG, SINGLE
     Route: 031

REACTIONS (3)
  - Glaucomatous optic disc atrophy [Unknown]
  - Glaucoma [Recovered/Resolved]
  - Off label use [Unknown]
